FAERS Safety Report 4377675-9 (Version None)
Quarter: 2004Q2

REPORT INFORMATION
  Report Type: 
  Country: None (occurrence: None)
  Receive Date: 20040615
  Receipt Date: 20040607
  Transmission Date: 20050107
  Serious: Yes (Disabling)
  Sender: FDA-Public Use
  Company Number: GB-ROCHE-370156

PATIENT
  Age: 50 Year
  Sex: Male

DRUGS (10)
  1. ORLISTAT [Suspect]
     Indication: OBESITY
     Route: 048
     Dates: start: 20040517, end: 20040517
  2. RAMIPRIL [Concomitant]
     Route: 065
  3. DIHYDROCODEINE [Concomitant]
     Route: 065
  4. CARVEDILOL [Concomitant]
     Route: 065
  5. SIMVASTATIN [Concomitant]
     Dosage: NOCTE.
     Route: 065
  6. ASPIRIN [Concomitant]
     Route: 065
  7. INSULIN NORDISK MIXTARD (PORK) [Concomitant]
     Route: 065
  8. GTN [Concomitant]
     Dosage: STRENGTH: 400 MCG/DOSE.
     Route: 065
  9. GAVISCON [Concomitant]
     Dosage: PLUS 20 ML NOCTE.
     Route: 065
  10. ORLISTAT [Concomitant]
     Route: 065

REACTIONS (2)
  - HEADACHE [None]
  - VERTIGO [None]
